FAERS Safety Report 7724192-1 (Version None)
Quarter: 2011Q3

REPORT INFORMATION
  Report Type: 
  Country: None (occurrence: None)
  Receive Date: 20110901
  Receipt Date: 20110825
  Transmission Date: 20111222
  Serious: Yes (Other)
  Sender: FDA-Public Use
  Company Number: CHPA2011US11512

PATIENT
  Sex: Female

DRUGS (1)
  1. LAMISIL AT [Suspect]
     Dosage: UNK, UNK
     Route: 061

REACTIONS (2)
  - HERPES ZOSTER [None]
  - PAIN [None]
